FAERS Safety Report 5709114-7 (Version None)
Quarter: 2008Q2

REPORT INFORMATION
  Report Type: 
  Country: None (occurrence: None)
  Receive Date: 20080416
  Receipt Date: 20080416
  Transmission Date: 20081010
  Serious: Yes (Other)
  Sender: FDA-Public Use
  Company Number: None

PATIENT
  Age: 53 Year
  Sex: Male
  Weight: 97.5234 kg

DRUGS (1)
  1. LEXAPRO [Suspect]
     Indication: DEPRESSION
     Dosage: 10 MG PER DAY PO
     Route: 048
     Dates: start: 20041229, end: 20080412

REACTIONS (6)
  - COGNITIVE DISORDER [None]
  - DISORIENTATION [None]
  - HEART RATE INCREASED [None]
  - HYPERTENSION [None]
  - LIBIDO DECREASED [None]
  - WITHDRAWAL SYNDROME [None]
